FAERS Safety Report 6150927-8 (Version None)
Quarter: 2009Q2

REPORT INFORMATION
  Report Type: 
  Country: None (occurrence: None)
  Receive Date: 20090408
  Receipt Date: 20090324
  Transmission Date: 20091009
  Serious: Yes (Life-Threatening, Hospitalization)
  Sender: FDA-Public Use
  Company Number: 2009S1005411

PATIENT
  Age: 73 Year
  Sex: Female
  Weight: 54 kg

DRUGS (11)
  1. RAMIPRIL [Suspect]
     Indication: PULMONARY HYPERTENSION
     Dosage: 10 MG; DAILY; ORAL
     Route: 048
     Dates: start: 20070601
  2. AMILORIDE HCL AND HYDROCHLOROTHIAZIDE [Suspect]
     Indication: HYPERTENSION
     Dosage: ORAL
     Route: 048
     Dates: end: 20090304
  3. CANDESARTAN CILEXETIL [Suspect]
     Indication: PULMONARY HYPERTENSION
     Dosage: 8 MG; TWICE A DAY; ORAL
     Route: 048
  4. FALITHROM [Concomitant]
  5. FALICARD [Concomitant]
  6. ARELIX [Concomitant]
  7. PANTOZOL [Concomitant]
  8. BISOPROLOL [Concomitant]
  9. AMLODIPINE [Concomitant]
  10. AMIODARONE HCL [Concomitant]
  11. ACETYLSALICYLIC ACID [Concomitant]

REACTIONS (2)
  - DRUG INTERACTION [None]
  - RENAL FAILURE ACUTE [None]
